FAERS Safety Report 8354281-2 (Version None)
Quarter: 2012Q2

REPORT INFORMATION
  Report Type: 
  Country: None (occurrence: None)
  Receive Date: 20120511
  Receipt Date: 20120502
  Transmission Date: 20120825
  Serious: Yes (Hospitalization)
  Sender: FDA-Public Use
  Company Number: DE-ROCHE-1062969

PATIENT
  Age: 60 Year
  Sex: Female
  Weight: 66 kg

DRUGS (4)
  1. PEGASYS [Suspect]
     Indication: HEPATITIS C
     Route: 058
     Dates: start: 20120210, end: 20120413
  2. TELAPREVIR [Suspect]
     Indication: HEPATITIS C
     Route: 048
     Dates: start: 20120210, end: 20120417
  3. FORMOTEROL FUMARATE [Concomitant]
     Dates: start: 20120328
  4. COPEGUS [Suspect]
     Indication: HEPATITIS C
     Route: 048
     Dates: start: 20120210, end: 20120417

REACTIONS (5)
  - ESCHERICHIA SEPSIS [None]
  - ASCITES [None]
  - RHABDOMYOLYSIS [None]
  - COUGH [None]
  - URINARY TRACT INFECTION BACTERIAL [None]
